FAERS Safety Report 11498091 (Version 1)
Quarter: 2015Q3

REPORT INFORMATION
  Report Type: Report from Study
  Country: AU (occurrence: AU)
  Receive Date: 20150911
  Receipt Date: 20150911
  Transmission Date: 20151125
  Serious: Yes (Other)
  Sender: FDA-Public Use
  Company Number: AU-PFIZER INC-2015291535

PATIENT

DRUGS (8)
  1. PHENOBARBITONE /00023201/ [Concomitant]
     Active Substance: PHENOBARBITAL
     Dosage: 200 MG, X1
     Route: 030
  2. PROMETHAZINE [Concomitant]
     Active Substance: PROMETHAZINE\PROMETHAZINE HYDROCHLORIDE
     Dosage: 50 MG X3
  3. PENICILLIN /00000901/ [Concomitant]
     Active Substance: PENICILLIN G
     Dosage: X8
     Route: 030
  4. PHENYTOIN. [Suspect]
     Active Substance: PHENYTOIN
     Indication: EPILEPSY
     Dosage: 300 MG, DAILY
     Route: 064
  5. PHENYTOIN. [Concomitant]
     Active Substance: PHENYTOIN
     Dosage: 100 MG X1
     Route: 030
  6. AMYLOBARBITONE [Suspect]
     Active Substance: AMOBARBITAL
     Indication: EPILEPSY
     Dosage: 150 MG, DAILY
     Route: 064
  7. SULPHATRIAD [Concomitant]
     Dosage: X8
     Route: 030
  8. PETHIDINE [Concomitant]
     Active Substance: MEPERIDINE
     Dosage: 100 MG X 1

REACTIONS (2)
  - Maternal exposure during pregnancy [Unknown]
  - Coagulation disorder neonatal [Unknown]
